FAERS Safety Report 20540148 (Version 1)
Quarter: 2022Q1

REPORT INFORMATION
  Report Type: Spontaneous
  Country: ES (occurrence: ES)
  Receive Date: 20220302
  Receipt Date: 20220302
  Transmission Date: 20220424
  Serious: Yes (Life-Threatening, Hospitalization)
  Sender: FDA-Public Use
  Company Number: None

PATIENT
  Age: 70 Year
  Sex: Female

DRUGS (1)
  1. FENTANYL [Suspect]
     Active Substance: FENTANYL
     Indication: Product used for unknown indication
     Dosage: ON PHYSICAL EXAMINATION, THERE ARE 5 FENTANYL PATCHES OF 50MCG/ H AND ONE FENTANYL PATCH.
     Route: 062
     Dates: start: 20210701, end: 20210712

REACTIONS (3)
  - Depressed level of consciousness [Unknown]
  - Product administration error [Unknown]
  - Accidental overdose [Unknown]

NARRATIVE: CASE EVENT DATE: 20210712
